FAERS Safety Report 22800813 (Version 5)
Quarter: 2024Q2

REPORT INFORMATION
  Report Type: Spontaneous
  Country: US (occurrence: US)
  Receive Date: 20230808
  Receipt Date: 20240409
  Transmission Date: 20240715
  Serious: No
  Sender: FDA-Public Use
  Company Number: US-BRISTOL-MYERS SQUIBB COMPANY-2023-111521

PATIENT
  Age: 55 Year
  Sex: Female

DRUGS (1)
  1. SPRYCEL [Suspect]
     Active Substance: DASATINIB
     Indication: Chronic myeloid leukaemia
     Route: 048
     Dates: start: 202307

REACTIONS (11)
  - Constipation [Unknown]
  - Fatigue [Unknown]
  - Asthenia [Unknown]
  - Mouth ulceration [Unknown]
  - Bowel movement irregularity [Unknown]
  - Stomatitis [Unknown]
  - Pain [Unknown]
  - Alopecia [Unknown]
  - Pigmentation disorder [Unknown]
  - Pyrexia [Unknown]
  - Skin disorder [Unknown]
